FAERS Safety Report 8577299-3 (Version None)
Quarter: 2012Q3

REPORT INFORMATION
  Report Type: 
  Country: None (occurrence: None)
  Receive Date: 20120807
  Receipt Date: 20120730
  Transmission Date: 20120928
  Serious: Yes (Life-Threatening, Hospitalization, Other)
  Sender: FDA-Public Use
  Company Number: US-CELGENEUS-163-21880-12071560

PATIENT
  Sex: Female

DRUGS (5)
  1. PLATELETS [Concomitant]
     Route: 041
  2. REVLIMID [Suspect]
     Dosage: 5 MILLIGRAM
     Route: 048
     Dates: start: 20120504, end: 20120719
  3. PROCRIT [Concomitant]
     Dosage: 20,000 UNITS
     Route: 058
     Dates: start: 20120719
  4. PROCRIT [Concomitant]
     Dosage: 10,000 UNITS
     Route: 058
     Dates: start: 20120520, end: 20120601
  5. REVLIMID [Suspect]
     Dosage: 2.5 MILLIGRAM
     Route: 048
     Dates: start: 20120719

REACTIONS (2)
  - PNEUMONIA [None]
  - PLATELET COUNT DECREASED [None]
